FAERS Safety Report 17255018 (Version 2)
Quarter: 2021Q1

REPORT INFORMATION
  Report Type: Spontaneous
  Country: FR (occurrence: FR)
  Receive Date: 20200109
  Receipt Date: 20210119
  Transmission Date: 20210419
  Serious: Yes (Death)
  Sender: FDA-Public Use
  Company Number: FR-BAXTER-2019BAX026808

PATIENT
  Age: 8 Year
  Sex: Female

DRUGS (2)
  1. NAVELBINE [Suspect]
     Active Substance: VINORELBINE TARTRATE
     Indication: EMBRYONAL RHABDOMYOSARCOMA
     Dosage: UNKNOWN
     Route: 065
     Dates: start: 20161006, end: 20161021
  2. ENDOXAN 50 MG, COMPRIME ENROBE [Suspect]
     Active Substance: CYCLOPHOSPHAMIDE
     Indication: EMBRYONAL RHABDOMYOSARCOMA
     Dosage: UNKNOWN
     Route: 048
     Dates: start: 20161006

REACTIONS (5)
  - Headache [Fatal]
  - Bradypnoea [Fatal]
  - Epilepsy [Fatal]
  - Vomiting [Fatal]
  - Arrhythmia [Fatal]

NARRATIVE: CASE EVENT DATE: 20161104
